FAERS Safety Report 20825565 (Version 1)
Quarter: 2022Q2

REPORT INFORMATION
  Report Type: Spontaneous
  Country: US (occurrence: US)
  Receive Date: 20220513
  Receipt Date: 20220513
  Transmission Date: 20220721
  Serious: No
  Sender: FDA-Public Use
  Company Number: None

PATIENT
  Age: 77 Year
  Sex: Male

DRUGS (1)
  1. REVLIMID [Suspect]
     Active Substance: LENALIDOMIDE
     Indication: Myelodysplastic syndrome
     Dosage: TAKE 1 CAPSULE EVRYDAY BY MOUTH FOR 21 DAYS, THEN 7 DAYS OFF.
     Route: 048
     Dates: start: 20200714

REACTIONS (1)
  - Product dose omission in error [Unknown]
